FAERS Safety Report 24108251 (Version 2)
Quarter: 2024Q3

REPORT INFORMATION
  Report Type: Spontaneous
  Country: JP (occurrence: JP)
  Receive Date: 20240718
  Receipt Date: 20240810
  Transmission Date: 20241016
  Serious: Yes (Death, Hospitalization)
  Sender: TEVA
  Company Number: JP-TEVA-VS-3220038

PATIENT
  Age: 76 Year
  Sex: Female

DRUGS (3)
  1. PREDNISOLONE [Suspect]
     Active Substance: PREDNISOLONE
     Indication: Respiratory failure
     Dosage: 1MG/KG (75 MG/BODY) PER DAY
     Route: 065
  2. METHYLPREDNISOLONE [Suspect]
     Active Substance: METHYLPREDNISOLONE
     Indication: Respiratory failure
     Dosage: SECOND DOSE OF PULSE THERAPY
     Route: 065
  3. METHYLPREDNISOLONE [Suspect]
     Active Substance: METHYLPREDNISOLONE
     Indication: Respiratory failure
     Dosage: PULSE THERAPY FOR 3 DAYS
     Route: 065

REACTIONS (1)
  - Drug ineffective [Fatal]
